FAERS Safety Report 9152816 (Version 1)
Quarter: 2013Q1

REPORT INFORMATION
  Report Type: Spontaneous
  Country: US (occurrence: US)
  Receive Date: 20130309
  Receipt Date: 20130309
  Transmission Date: 20140127
  Serious: Yes (Death, Other)
  Sender: FDA-Public Use
  Company Number: US-TEVA-390195USA

PATIENT
  Sex: Female

DRUGS (2)
  1. DIAZEPAM [Suspect]
  2. PARACETAMOL [Suspect]

REACTIONS (1)
  - Death [Fatal]
